FAERS Safety Report 8784487 (Version 1)
Quarter: 2012Q4

REPORT INFORMATION
  Report Type: 
  Country: SE (occurrence: SE)
  Receive Date: 20120913
  Receipt Date: 20120913
  Transmission Date: 20130627
  Serious: Yes (Hospitalization)
  Sender: FDA-Public Use
  Company Number: SE-PFIZER INC-2012221148

PATIENT
  Age: 85 Year
  Sex: Male
  Weight: 76.5 kg

DRUGS (12)
  1. GENOTROPIN [Suspect]
     Indication: HYPOPITUITARISM
     Dosage: 0.1 mg, 1x/day (7 injections/week)
     Route: 058
     Dates: start: 20010419
  2. TESTOVIRON-DEPOT [Concomitant]
     Indication: BLOOD LUTEINISING HORMONE DECREASED
     Dosage: UNK
     Dates: start: 19940501
  3. TESTOVIRON-DEPOT [Concomitant]
     Indication: BLOOD FOLLICLE STIMULATING HORMONE DECREASED
  4. SELOKEEN ZOC [Concomitant]
     Indication: ANGINA PECTORIS
     Dosage: UNK
     Dates: start: 20011215
  5. LEVAXIN [Concomitant]
     Indication: HYPOTHYROIDISM
     Dosage: UNK
     Dates: start: 20010919
  6. SOTACOR [Concomitant]
     Indication: CONDUCTION DISORDER
     Dosage: UNK
     Dates: start: 19570101
  7. FEM-MONO [Concomitant]
     Indication: ANGINA PECTORIS
     Dosage: UNK
     Dates: start: 20011211
  8. LANACRIST [Concomitant]
     Indication: CONDUCTION DISORDER
     Dosage: UNK
     Dates: start: 19570101
  9. HYDROCORTISONE [Concomitant]
     Indication: BLOOD CORTICOTROPHIN DECREASED
     Dosage: UNK
     Dates: start: 20050721
  10. ZYLORIC [Concomitant]
     Indication: HYPERURICAEMIA
     Dosage: UNK
     Dates: start: 20030618
  11. TROMBYL [Concomitant]
     Dosage: UNK
     Dates: start: 20010517
  12. LASIX RETARD [Concomitant]
     Indication: HYPERTONIA
     Dosage: UNK
     Dates: start: 20030618

REACTIONS (1)
  - Oropharyngeal pain [Unknown]
